FAERS Safety Report 25208698 (Version 1)
Quarter: 2025Q2

REPORT INFORMATION
  Report Type: Spontaneous
  Country: US (occurrence: US)
  Receive Date: 20250417
  Receipt Date: 20250417
  Transmission Date: 20250716
  Serious: Yes (Other)
  Sender: BRISTOL MYERS SQUIBB
  Company Number: US-BRISTOL-MYERS SQUIBB COMPANY-2025-052477

PATIENT
  Age: 53 Year
  Sex: Male
  Weight: 104.33 kg

DRUGS (4)
  1. ELIQUIS [Suspect]
     Active Substance: APIXABAN
     Indication: Pulmonary embolism
     Route: 048
  2. ELIQUIS [Suspect]
     Active Substance: APIXABAN
     Indication: Deep vein thrombosis
     Route: 048
  3. ELIQUIS [Suspect]
     Active Substance: APIXABAN
     Indication: Thrombosis
     Route: 048
  4. ELIQUIS [Suspect]
     Active Substance: APIXABAN
     Route: 048

REACTIONS (3)
  - Deep vein thrombosis [Recovering/Resolving]
  - Treatment noncompliance [Unknown]
  - Off label use [Unknown]
